FAERS Safety Report 7369480-6 (Version None)
Quarter: 2011Q1

REPORT INFORMATION
  Report Type: 
  Country: None (occurrence: None)
  Receive Date: 20110323
  Receipt Date: 20110202
  Transmission Date: 20110831
  Serious: Yes (Other)
  Sender: FDA-Public Use
  Company Number: US-BAYER-200915590NA

PATIENT
  Sex: Female

DRUGS (7)
  1. ASPIRIN [Concomitant]
     Dosage: 81 MG, UNK
     Route: 048
  2. FUROSEMIDE [Concomitant]
     Dosage: 80 MG, QD
     Route: 048
  3. LISINOPRIL [Concomitant]
     Dosage: 20 MG, QD
     Route: 048
  4. TOPROL-XL [Concomitant]
     Dosage: 100 MG, QD
     Route: 048
  5. TRASYLOL [Suspect]
     Indication: CARDIAC OPERATION
     Dosage: UNK
     Route: 042
     Dates: start: 20030818
  6. TRASYLOL [Suspect]
     Indication: CORONARY ARTERY BYPASS
  7. GLYBURIDE [Concomitant]
     Dosage: 10 MG, UNK
     Route: 048

REACTIONS (8)
  - RENAL FAILURE [None]
  - INJURY [None]
  - DEPRESSION [None]
  - UNEVALUABLE EVENT [None]
  - PAIN [None]
  - FEAR [None]
  - ANHEDONIA [None]
  - ANXIETY [None]
